FAERS Safety Report 16203133 (Version 1)
Quarter: 2019Q2

REPORT INFORMATION
  Report Type: Report from Study
  Country: FR (occurrence: FR)
  Receive Date: 20190416
  Receipt Date: 20190416
  Transmission Date: 20190711
  Serious: Yes (Life-Threatening, Hospitalization, Other)
  Sender: FDA-Public Use
  Company Number: FR-MYLANLABS-2019M1036114

PATIENT
  Age: 63 Year
  Sex: Female
  Weight: 71 kg

DRUGS (5)
  1. SODIUM CHLORIDE. [Concomitant]
     Active Substance: SODIUM CHLORIDE
     Indication: PRODUCT SOLUBILITY ABNORMAL
     Dosage: NEBULISATION; WITH CIXPLATIN
     Route: 033
  2. SODIUM CHLORIDE. [Concomitant]
     Active Substance: SODIUM CHLORIDE
     Dosage: NEBULISATION; WITH DOXORUBICIN
     Route: 033
  3. CISPLATIN. [Suspect]
     Active Substance: CISPLATIN
     Indication: OVARIAN CANCER
     Dosage: NEBULISATION; 7.5 MG/M2 OF BODY SURFACE IN 150 ML OF NACL 0.9% IMMEDIATELY FOLLOWED BY DOXORUBICIN
     Route: 033
  4. BEVACIZUMAB. [Suspect]
     Active Substance: BEVACIZUMAB
     Indication: OVARIAN CANCER
     Dosage: DURING THE PIPAC
     Route: 065
  5. DOXORUBICIN [Suspect]
     Active Substance: DOXORUBICIN
     Indication: OVARIAN CANCER
     Dosage: NEBULISATION; 1.5 MG/M2 OF BODY SURFACE IN 50 ML OF NACL 0.9%
     Route: 033

REACTIONS (3)
  - Parotitis [Recovering/Resolving]
  - Anaphylactic shock [Recovering/Resolving]
  - Generalised erythema [Recovering/Resolving]
